FAERS Safety Report 8541048 (Version 2)
Quarter: 2015Q2

REPORT INFORMATION
  Report Type: Spontaneous
  Country: US (occurrence: US)
  Receive Date: 20120502
  Receipt Date: 20150422
  Transmission Date: 20150821
  Serious: No
  Sender: FDA-Public Use
  Company Number: US-ASTRAZENECA-2011SE44268

PATIENT
  Age: 54 Year
  Sex: Female
  Weight: 57.2 kg

DRUGS (1)
  1. FASLODEX [Suspect]
     Active Substance: FULVESTRANT
     Indication: BREAST CANCER
     Dosage: MONTHLY
     Route: 030
     Dates: start: 201101

REACTIONS (5)
  - Trichorrhexis [Unknown]
  - Bone pain [Unknown]
  - Acne [Unknown]
  - Alopecia [Unknown]
  - Weight increased [Unknown]
